FAERS Safety Report 8649249 (Version 2)
Quarter: 2014Q1

REPORT INFORMATION
  Report Type: Spontaneous
  Country: US (occurrence: US)
  Receive Date: 20120705
  Receipt Date: 20140326
  Transmission Date: 20141002
  Serious: Yes (Hospitalization, Other)
  Sender: FDA-Public Use
  Company Number: US-ELI_LILLY_AND_COMPANY-US201206009152

PATIENT
  Age: 40 Year
  Sex: Male

DRUGS (5)
  1. ZYPREXA [Suspect]
     Indication: PSYCHOTIC DISORDER
     Dosage: 10 MG, UNKNOWN
     Route: 065
  2. ZYPREXA [Suspect]
     Dosage: 30 MG, EACH EVENING
  3. ZYPREXA [Suspect]
     Dosage: 60 MG, EACH EVENING
  4. ZYPREXA [Suspect]
     Dosage: 15 MG, EACH EVENING
  5. HALDOL [Concomitant]

REACTIONS (3)
  - Haemorrhagic stroke [Unknown]
  - Diabetes mellitus [Unknown]
  - Prescribed overdose [Recovered/Resolved]
